FAERS Safety Report 10401912 (Version 2)
Quarter: 2014Q3

REPORT INFORMATION
  Report Type: Spontaneous
  Country: US (occurrence: None)
  Receive Date: 20130815
  Receipt Date: 20140815
  Transmission Date: 20150326
  Serious: Yes (Other)
  Sender: FDA-Public Use
  Company Number: ADR-2012-01945

PATIENT
  Age: 54 Year
  Sex: Female

DRUGS (3)
  1. BUPIVACAINE INTRATHECAL - 30 MG/ML [Suspect]
     Active Substance: BUPIVACAINE
  2. MORPHINE INTRATHECAL [Suspect]
     Active Substance: MORPHINE
  3. BACLOFEN INTRATHECAL (BACLOFEN INJECTION) [Suspect]
     Active Substance: BACLOFEN
     Indication: MUSCLE SPASTICITY

REACTIONS (7)
  - Malaise [None]
  - Vomiting [None]
  - Coma [None]
  - Drug withdrawal syndrome [None]
  - Chills [None]
  - Dehydration [None]
  - Decreased appetite [None]

NARRATIVE: CASE EVENT DATE: 20121015
